FAERS Safety Report 16521536 (Version 1)
Quarter: 2019Q3

REPORT INFORMATION
  Report Type: Spontaneous
  Country: US (occurrence: US)
  Receive Date: 20190703
  Receipt Date: 20190703
  Transmission Date: 20191004
  Serious: No
  Sender: FDA-Public Use
  Company Number: US-TEVA-2019-US-1065126

PATIENT
  Sex: Female

DRUGS (1)
  1. CYCLOBENZAPRINE HCL TEVA [Suspect]
     Active Substance: CYCLOBENZAPRINE HYDROCHLORIDE
     Route: 065

REACTIONS (3)
  - Poor quality product administered [Unknown]
  - Malaise [Unknown]
  - Product quality issue [Unknown]
